FAERS Safety Report 8614046-0 (Version None)
Quarter: 2012Q2

REPORT INFORMATION
  Report Type: 
  Country: None (occurrence: None)
  Receive Date: 20120423
  Receipt Date: 20090715
  Transmission Date: 20120825
  Serious: Yes (Other)
  Sender: FDA-Public Use
  Company Number: PHEH2009US04788

PATIENT
  Age: 52 Year
  Sex: Male
  Weight: 65 kg

DRUGS (11)
  1. PREDNISONE TAB [Concomitant]
  2. NEXIUM [Concomitant]
  3. AMBIEN [Concomitant]
  4. EXJADE [Suspect]
     Indication: IRON OVERLOAD
     Dosage: 1250 MG DAILY, ORAL
     Route: 048
     Dates: start: 20090325, end: 20090401
  5. EXJADE [Suspect]
     Indication: NON-HODGKIN'S LYMPHOMA
     Dosage: 1250 MG DAILY, ORAL
     Route: 048
     Dates: start: 20090325, end: 20090401
  6. ACYCLOVIR [Concomitant]
  7. POTASSIUM (POTASSIUM) [Concomitant]
  8. MAGNESIUM HYDROXIDE TAB [Concomitant]
  9. BACTRIM DS [Concomitant]
  10. ANIDUAFUNGIN (ANIDULAFUNGIN) [Concomitant]
  11. OXYCODONE HCL [Concomitant]

REACTIONS (3)
  - BLOOD UREA INCREASED [None]
  - BLOOD CREATININE INCREASED [None]
  - RENAL FAILURE [None]
